FAERS Safety Report 5148496-4 (Version None)
Quarter: 2006Q4

REPORT INFORMATION
  Report Type: 
  Country: None (occurrence: None)
  Receive Date: 20061106
  Receipt Date: 20061027
  Transmission Date: 20070319
  Serious: Yes (Other)
  Sender: FDA-Public Use
  Company Number: BE-2006-013575

PATIENT
  Age: 49 Year
  Sex: Female

DRUGS (1)
  1. MIRENA [Suspect]
     Indication: DRUG USE FOR UNKNOWN INDICATION
     Dosage: 20 UG/DAY, CONT, INTRA-UTERINE
     Route: 015
     Dates: end: 20060101

REACTIONS (5)
  - ENDOMETRIAL CANCER [None]
  - ENDOMETRIAL HYPERTROPHY [None]
  - OVARIAN CYST [None]
  - SALPINGITIS [None]
  - UTERINE LEIOMYOMA [None]
